FAERS Safety Report 4610106-X (Version None)
Quarter: 2005Q1

REPORT INFORMATION
  Report Type: 
  Country: None (occurrence: None)
  Receive Date: 20050316
  Receipt Date: 20040329
  Transmission Date: 20050727
  Serious: No
  Sender: FDA-Public Use
  Company Number: US-GLAXOSMITHKLINE-A0504921A

PATIENT
  Sex: Female

DRUGS (3)
  1. COMPAZINE [Suspect]
     Indication: NAUSEA
     Route: 065
  2. ZOFRAN [Suspect]
     Indication: PROPHYLAXIS OF NAUSEA AND VOMITING
     Dosage: 8MG VARIABLE DOSE
     Route: 048
  3. ZOFRAN [Suspect]
     Dosage: 8MG VARIABLE DOSE
     Route: 048

REACTIONS (2)
  - AGITATION [None]
  - TREMOR [None]
